FAERS Safety Report 4325175-4 (Version None)
Quarter: 2004Q1

REPORT INFORMATION
  Report Type: 
  Country: None (occurrence: None)
  Receive Date: 20040326
  Receipt Date: 20030130
  Transmission Date: 20041129
  Serious: Yes (Other)
  Sender: FDA-Public Use
  Company Number: US-MERCK-0302USA00102

PATIENT
  Age: 69 Year
  Sex: Female
  Weight: 118 kg

DRUGS (5)
  1. ASPIRIN [Concomitant]
     Route: 048
  2. BUMEX [Concomitant]
     Indication: OEDEMA
  3. PREMARIN [Concomitant]
     Dates: end: 20040126
  4. PRINIVIL [Concomitant]
     Route: 048
  5. VIOXX [Suspect]
     Indication: ARTHRITIS
     Route: 048

REACTIONS (15)
  - ANXIETY [None]
  - CARDIAC DISORDER [None]
  - CEREBROVASCULAR ACCIDENT [None]
  - DEPRESSION [None]
  - DYSPNOEA [None]
  - EMOTIONAL DISTRESS [None]
  - GASTROOESOPHAGEAL REFLUX DISEASE [None]
  - HEART RATE IRREGULAR [None]
  - HEPATITIS C [None]
  - HYPERTENSION [None]
  - INJURY [None]
  - OEDEMA [None]
  - OROPHARYNGEAL SPASM [None]
  - PARKINSON'S DISEASE [None]
  - VERTIGO [None]
